FAERS Safety Report 5899709-2 (Version None)
Quarter: 2008Q3

REPORT INFORMATION
  Report Type: 
  Country: None (occurrence: None)
  Receive Date: 20080922
  Receipt Date: 20080905
  Transmission Date: 20090109
  Serious: Yes (Death)
  Sender: FDA-Public Use
  Company Number: OMX-2008-00043

PATIENT
  Sex: Female

DRUGS (2)
  1. EVICEL [Suspect]
     Indication: HAEMOSTASIS
     Dosage: ONCE
  2. SURGICEL (OXIDISED CELLULOSE) [Concomitant]

REACTIONS (6)
  - AIR EMBOLISM [None]
  - CARDIAC ARREST [None]
  - CARDIAC DISORDER [None]
  - CEREBRAL DISORDER [None]
  - HAEMODYNAMIC INSTABILITY [None]
  - MEDICAL DEVICE COMPLICATION [None]
